FAERS Safety Report 23445432 (Version 1)
Quarter: 2024Q1

REPORT INFORMATION
  Report Type: Spontaneous
  Country: US (occurrence: US)
  Receive Date: 20240126
  Receipt Date: 20240126
  Transmission Date: 20240410
  Serious: Yes (Other)
  Sender: FDA-Public Use
  Company Number: US-QUAGEN-2024QUALIT00012

PATIENT
  Sex: Male

DRUGS (2)
  1. CLOBETASOL PROPIONATE [Suspect]
     Active Substance: CLOBETASOL PROPIONATE
     Indication: Lichen sclerosus
     Route: 061
  2. TACROLIMUS [Concomitant]
     Active Substance: TACROLIMUS
     Indication: Lichen sclerosus
     Route: 065

REACTIONS (2)
  - Central serous chorioretinopathy [Recovered/Resolved]
  - Product use in unapproved indication [Unknown]
